FAERS Safety Report 4900622-5 (Version None)
Quarter: 2006Q1

REPORT INFORMATION
  Report Type: 
  Country: None (occurrence: None)
  Receive Date: 20060201
  Receipt Date: 20060123
  Transmission Date: 20060701
  Serious: Yes (Disabling, Other)
  Sender: FDA-Public Use
  Company Number: US200601000436

PATIENT
  Age: 63 Year
  Sex: Female

DRUGS (1)
  1. PROZAC [Suspect]

REACTIONS (8)
  - COLON OPERATION [None]
  - ECONOMIC PROBLEM [None]
  - FEELING ABNORMAL [None]
  - LOSS OF EMPLOYMENT [None]
  - NEOPLASM MALIGNANT [None]
  - STRESS [None]
  - SURGERY [None]
  - TREATMENT NONCOMPLIANCE [None]
